FAERS Safety Report 9897837 (Version 2)
Quarter: 2014Q2

REPORT INFORMATION
  Report Type: Spontaneous
  Country: US (occurrence: US)
  Receive Date: 20140214
  Receipt Date: 20140428
  Transmission Date: 20141212
  Serious: Yes (Death, Life-Threatening, Hospitalization)
  Sender: FDA-Public Use
  Company Number: US-SA-2014SA017728

PATIENT
  Age: 79 Year
  Sex: Female
  Weight: 68.03 kg

DRUGS (3)
  1. LOVENOX [Suspect]
     Indication: EMBOLISM
     Dosage: SOME OF THE INJECTIONS WERE GIVEN IM.
     Route: 058
     Dates: start: 20131019, end: 20131221
  2. ALEVE [Concomitant]
     Indication: FATIGUE
     Dosage: STARTED YEARS AGO- TAKEN ONCE OR TWICE A WEEK
     Dates: end: 20130901
  3. ALEVE [Concomitant]
     Indication: PAIN
     Dosage: STARTED YEARS AGO- TAKEN ONCE OR TWICE A WEEK
     Dates: end: 20130901

REACTIONS (5)
  - Convulsion [Unknown]
  - Haemorrhage intracranial [Fatal]
  - Weight decreased [Unknown]
  - Blood pressure abnormal [Unknown]
  - Injection site haematoma [Unknown]
